FAERS Safety Report 9456149 (Version 2)
Quarter: 2013Q3

REPORT INFORMATION
  Report Type: Spontaneous
  Country: LB (occurrence: None)
  Receive Date: 20130808
  Receipt Date: 20130916
  Transmission Date: 20140515
  Serious: Yes (Other)
  Sender: FDA-Public Use
  Company Number: SYM-2013-07810

PATIENT
  Age: 77 Year
  Sex: Female

DRUGS (4)
  1. 5 FU [Suspect]
     Indication: COLORECTAL CANCER METASTATIC
     Route: 040
     Dates: start: 20130716, end: 20130716
  2. AFLIBERCEPT (AFLIBERCEPT) (SOLUTION FOR INFUSION) (AFLIBERCEPT) [Suspect]
     Indication: COLORECTAL CANCER METASTATIC
     Dosage: 4 MG/KG, EVERY OTHER WEEK, INTRAVENOUS (NOT OTHERWISE SPECIFIED)
     Route: 042
     Dates: start: 20130716, end: 20130716
  3. IRINOTECAN [Suspect]
     Indication: COLORECTAL CANCER METASTATIC
     Dosage: EVERY OTHER WEEK, INTRAVENOUS (NOT OTHERWISE SPECIFIED)
     Route: 042
     Dates: start: 20130716, end: 20130716
  4. LEUCOVORIN [Suspect]
     Indication: COLORECTAL CANCER METASTATIC
     Dosage: EVERY OTHER WEEK, INTRAVENOUS (NOT OTHERWISE SPECIFIED)
     Route: 042
     Dates: start: 20130716, end: 20130716

REACTIONS (2)
  - Diarrhoea [None]
  - Ulcer [None]
